FAERS Safety Report 23649370 (Version 1)
Quarter: 2024Q1

REPORT INFORMATION
  Report Type: Spontaneous
  Country: US (occurrence: US)
  Receive Date: 20240319
  Receipt Date: 20240319
  Transmission Date: 20240410
  Serious: Yes (Other)
  Sender: FDA-Public Use
  Company Number: US-PFIZER INC-202400066845

PATIENT
  Age: 17 Year
  Sex: Male

DRUGS (2)
  1. BENEFIX [Suspect]
     Active Substance: COAGULATION FACTOR IX RECOMBINANT HUMAN\ISOPROPYL ALCOHOL
     Indication: Gingival bleeding
     Dosage: 2,000 UNITS IV DAILY PRN (AS NEEDED) FOR MINOR BLEEDS
     Route: 042
  2. BENEFIX [Suspect]
     Active Substance: COAGULATION FACTOR IX RECOMBINANT HUMAN\ISOPROPYL ALCOHOL
     Indication: Factor IX deficiency
     Dosage: 4000 UNITS DAILY PRN (AS NEEDED) FOR MAJOR BLEEDS (+/-10 PERCENTAGE SIGN)
     Route: 042

REACTIONS (4)
  - Gingival bleeding [Unknown]
  - Tooth socket haemorrhage [Unknown]
  - Fatigue [Unknown]
  - Hypophagia [Unknown]
